FAERS Safety Report 21676587 (Version 2)
Quarter: 2022Q4

REPORT INFORMATION
  Report Type: Spontaneous
  Country: BR (occurrence: BR)
  Receive Date: 20221202
  Receipt Date: 20221212
  Transmission Date: 20230112
  Serious: Yes (Hospitalization)
  Sender: FDA-Public Use
  Company Number: BR-BIOMARINAP-BR-2022-142006

PATIENT

DRUGS (3)
  1. NAGLAZYME [Suspect]
     Active Substance: GALSULFASE
     Indication: Mucopolysaccharidosis VI
     Dosage: UNK, QW
     Route: 042
  2. BECLOMETHASONE DIPROPIONATE [Concomitant]
     Active Substance: BECLOMETHASONE DIPROPIONATE
     Indication: Product used for unknown indication
     Dosage: UNK UNK, QD
  3. ALBUTEROL [Concomitant]
     Active Substance: ALBUTEROL
     Indication: Asthma
     Dosage: UNK, PRN

REACTIONS (5)
  - Influenza [Unknown]
  - Pyrexia [Unknown]
  - Oropharyngeal pain [Unknown]
  - Cough [Unknown]
  - Sinusitis [Unknown]

NARRATIVE: CASE EVENT DATE: 20220304
